FAERS Safety Report 9929027 (Version 2)
Quarter: 2014Q1

REPORT INFORMATION
  Report Type: Spontaneous
  Country: US (occurrence: US)
  Receive Date: 20140227
  Receipt Date: 20140227
  Transmission Date: 20141002
  Serious: Yes (Other)
  Sender: FDA-Public Use
  Company Number: US-GE HEALTHCARE MEDICAL DIAGNOSTICS-OSCN-PR-0804S-0196

PATIENT
  Age: 52 Year
  Sex: Female

DRUGS (3)
  1. OMNISCAN [Suspect]
     Indication: DEEP VEIN THROMBOSIS
     Route: 042
     Dates: start: 20051104, end: 20051104
  2. OMNISCAN [Suspect]
     Route: 042
     Dates: start: 20051220, end: 20051220
  3. OMNISCAN [Suspect]
     Route: 042
     Dates: start: 20060723, end: 20060723

REACTIONS (1)
  - Nephrogenic systemic fibrosis [Not Recovered/Not Resolved]
